FAERS Safety Report 13872000 (Version 1)
Quarter: 2017Q3

REPORT INFORMATION
  Report Type: Spontaneous
  Country: US (occurrence: US)
  Receive Date: 20170816
  Receipt Date: 20170816
  Transmission Date: 20171127
  Serious: Yes (Hospitalization, Other)
  Sender: FDA-Public Use
  Company Number: US-SAOL THERAPEUTICS-2017SAO01224

PATIENT
  Age: 18 Year
  Sex: Male
  Weight: 45.1 kg

DRUGS (8)
  1. CALTRATE [Concomitant]
     Active Substance: CALCIUM CARBONATE
  2. ATIVAN [Concomitant]
     Active Substance: LORAZEPAM
     Dosage: 1 TABLETS, AS NEEDED
     Route: 048
  3. CLONIDINE. [Concomitant]
     Active Substance: CLONIDINE
     Dosage: 1 TABLETS, 1X/DAY AT BEDTIME
     Route: 048
  4. PRILOSEC [Concomitant]
     Active Substance: OMEPRAZOLE MAGNESIUM
     Dosage: 40 MG, 1X/DAY
     Route: 048
  5. MIRALAX [Concomitant]
     Active Substance: POLYETHYLENE GLYCOL 3350
     Dosage: 17 G, 2X/DAY
     Route: 048
  6. SUCRALFATE. [Concomitant]
     Active Substance: SUCRALFATE
     Dosage: 1 G, 3X/DAY
     Route: 048
  7. LIORESAL [Suspect]
     Active Substance: BACLOFEN
     Dosage: 1201.6 ?G, \DAY
     Route: 037
     Dates: start: 20170626
  8. DOCUSATE SODIUM. [Concomitant]
     Active Substance: DOCUSATE SODIUM
     Dosage: 100 MG, 2X/DAY
     Route: 048

REACTIONS (20)
  - Anaemia [Unknown]
  - Hypotonia [Unknown]
  - Gastrointestinal ulcer [Unknown]
  - Asthenia [Unknown]
  - Discomfort [Unknown]
  - Oligodipsia [Unknown]
  - Hypertonia [Unknown]
  - Communication disorder [Unknown]
  - Somnolence [Unknown]
  - Bradycardia [Unknown]
  - Muscle spasticity [Unknown]
  - Weight decreased [Unknown]
  - Mental status changes [Recovered/Resolved]
  - Constipation [Unknown]
  - Muscle contracture [Unknown]
  - Unresponsive to stimuli [Recovered/Resolved]
  - Gastritis [Unknown]
  - Vomiting [Unknown]
  - Fatigue [Unknown]
  - Decreased appetite [Unknown]

NARRATIVE: CASE EVENT DATE: 2017
